FAERS Safety Report 9099623 (Version 2)
Quarter: 2015Q1

REPORT INFORMATION
  Report Type: Spontaneous
  Country: US (occurrence: US)
  Receive Date: 20130214
  Receipt Date: 20150130
  Transmission Date: 20150721
  Serious: Yes (Other)
  Sender: FDA-Public Use
  Company Number: PHHY2013US012458

PATIENT
  Age: 72 Year
  Sex: Male

DRUGS (6)
  1. ENTACAPONE-LEVODOPA-CARBIDOPA [Suspect]
     Active Substance: CARBIDOPA\ENTACAPONE\LEVODOPA
     Dosage: 100 MG, Q3H
     Route: 065
  2. AMANTADINE [Concomitant]
     Active Substance: AMANTADINE
     Indication: PARKINSON^S DISEASE
     Dosage: 100 MG, DAILY
     Route: 065
  3. AMITRIPTYLINE [Concomitant]
     Active Substance: AMITRIPTYLINE
     Indication: PRODUCT USED FOR UNKNOWN INDICATION
     Dosage: 50 MG, AT NIGHT
     Route: 065
  4. CARBIDOPA/LEVODOPA [Concomitant]
     Active Substance: CARBIDOPA\LEVODOPA
     Indication: PARKINSON^S DISEASE
     Dosage: 0.5 DF, EVERY 02 HOUR DAILY
     Route: 065
  5. ENTACAPONE-LEVODOPA-CARBIDOPA [Suspect]
     Active Substance: CARBIDOPA\ENTACAPONE\LEVODOPA
     Indication: PARKINSON^S DISEASE
     Dosage: 100 MG, Q4H
     Route: 065
  6. ALPRAZOLAM. [Concomitant]
     Active Substance: ALPRAZOLAM
     Indication: PRODUCT USED FOR UNKNOWN INDICATION
     Dosage: 0.5 MG, BID
     Route: 065

REACTIONS (5)
  - Dyskinesia [Unknown]
  - Drug dependence [Unknown]
  - On and off phenomenon [Unknown]
  - Dopamine dysregulation syndrome [Recovered/Resolved]
  - Drug ineffective [Unknown]
